FAERS Safety Report 13097170 (Version 1)
Quarter: 2017Q1

REPORT INFORMATION
  Report Type: Spontaneous
  Country: US (occurrence: US)
  Receive Date: 20170109
  Receipt Date: 20170109
  Transmission Date: 20170428
  Serious: Yes (Hospitalization)
  Sender: FDA-Public Use
  Company Number: None

PATIENT
  Age: 47 Year
  Sex: Male
  Weight: 101.8 kg

DRUGS (1)
  1. VANCOMYCIN [Suspect]
     Active Substance: VANCOMYCIN
     Route: 042
     Dates: start: 20160816, end: 20160831

REACTIONS (12)
  - Dizziness [None]
  - Diarrhoea [None]
  - Anaphylactic reaction [None]
  - Asthenia [None]
  - Eosinophilia [None]
  - Drug hypersensitivity [None]
  - Device related infection [None]
  - Rash morbilliform [None]
  - Headache [None]
  - Pyrexia [None]
  - Tooth infection [None]
  - Drug reaction with eosinophilia and systemic symptoms [None]

NARRATIVE: CASE EVENT DATE: 20160831
